FAERS Safety Report 23921039 (Version 1)
Quarter: 2024Q2

REPORT INFORMATION
  Report Type: Spontaneous
  Country: US (occurrence: None)
  Receive Date: 20240529
  Receipt Date: 20240529
  Transmission Date: 20240716
  Serious: Yes (unspecified)
  Sender: FDA-Public Use
  Company Number: None

PATIENT
  Age: 64 Year
  Sex: Female
  Weight: 62.1 kg

DRUGS (6)
  1. DUPIXENT [Suspect]
     Active Substance: DUPILUMAB
     Indication: Neurodermatitis
     Dosage: OTHER QUANTITY : 2 INJECTION(S);?OTHER FREQUENCY : EVERY TWO WEEKS;?
     Route: 030
     Dates: start: 20240508, end: 20240522
  2. GABAPENTIN [Concomitant]
  3. RITALIN [Concomitant]
  4. MELATONIN [Concomitant]
  5. XYZAL [Concomitant]
  6. VITAMIN D NOS [Concomitant]
     Active Substance: CHOLECALCIFEROL\ERGOCALCIFEROL

REACTIONS (9)
  - Impaired healing [None]
  - Phobia [None]
  - Injection site pain [None]
  - Pruritus [None]
  - Paranasal sinus hyposecretion [None]
  - Anxiety [None]
  - Panic disorder [None]
  - Vision blurred [None]
  - Arthralgia [None]

NARRATIVE: CASE EVENT DATE: 20240521
